FAERS Safety Report 20932051 (Version 1)
Quarter: 2022Q2

REPORT INFORMATION
  Report Type: Report from Study
  Country: MX (occurrence: MX)
  Receive Date: 20220608
  Receipt Date: 20220608
  Transmission Date: 20220721
  Serious: Yes (Other)
  Sender: FDA-Public Use
  Company Number: MX-NOVARTISPH-PHHY2019MX059155

PATIENT
  Age: 59 Year
  Sex: Female
  Weight: 65 kg

DRUGS (2)
  1. DIOVAN [Suspect]
     Active Substance: VALSARTAN
     Indication: Hypertension
     Dosage: 0.5 DOSAGE FORM, QD
     Route: 048
     Dates: start: 20150313
  2. ACLIMAFEL [Concomitant]
     Indication: Menopause
     Dosage: 1 DF, UNK (ONE AT NIGHT) (STOPPED THREE YEARS AGO)
     Route: 048
     Dates: start: 2010

REACTIONS (6)
  - Diabetes mellitus [Unknown]
  - Yellow skin [Recovered/Resolved]
  - Weight decreased [Recovered/Resolved]
  - Blood glucose increased [Unknown]
  - Prescribed underdose [Unknown]
  - Wrong technique in product usage process [Unknown]

NARRATIVE: CASE EVENT DATE: 20190101
